FAERS Safety Report 18032135 (Version 1)
Quarter: 2020Q3

REPORT INFORMATION
  Report Type: Spontaneous
  Country: US (occurrence: US)
  Receive Date: 20200715
  Receipt Date: 20200715
  Transmission Date: 20201103
  Serious: No
  Sender: FDA-Public Use
  Company Number: None

PATIENT

DRUGS (2)
  1. DOBUTAMINE HCL DOBUTAMINE [Suspect]
     Active Substance: DOBUTAMINE HYDROCHLORIDE
  2. DOBUTAMINE HCL DOBUTAMINE [Suspect]
     Active Substance: DOBUTAMINE HYDROCHLORIDE

REACTIONS (4)
  - Product selection error [None]
  - Product packaging confusion [None]
  - Intercepted product dispensing error [None]
  - Drug monitoring procedure not performed [None]
